FAERS Safety Report 17280071 (Version 1)
Quarter: 2020Q1

REPORT INFORMATION
  Report Type: Spontaneous
  Country: ZA (occurrence: ZA)
  Receive Date: 20200117
  Receipt Date: 20200117
  Transmission Date: 20200409
  Serious: Yes (Death, Other)
  Sender: FDA-Public Use
  Company Number: ZA-LUPIN PHARMACEUTICALS INC.-2020-00180

PATIENT
  Sex: Male

DRUGS (9)
  1. ENAP TABLET [Suspect]
     Active Substance: ENALAPRIL MALEATE
     Indication: HYPERTENSION
     Dosage: 5 MILLIGRAM
     Route: 048
     Dates: end: 20191214
  2. ECOTRIN [Suspect]
     Active Substance: ASPIRIN
     Indication: ANTICOAGULANT THERAPY
     Dosage: 81 MILLIGRAM
     Route: 048
     Dates: end: 20191214
  3. EPILIZINE [Suspect]
     Active Substance: VALPROATE SODIUM
     Indication: EPILEPSY
     Dosage: 500 MILLIGRAM
     Route: 048
     Dates: end: 20191214
  4. ALTOSEC [OMEPRAZOLE SODIUM] [Suspect]
     Active Substance: OMEPRAZOLE
     Indication: ULCER
     Dosage: 20 MILLIGRAM
     Route: 048
     Dates: end: 20191214
  5. CARVETREND TABLETS [Suspect]
     Active Substance: CARVEDILOL
     Indication: HYPERTENSION
     Dosage: 12.5 MILLIGRAM
     Route: 048
     Dates: end: 20191214
  6. ALDACTONE [Suspect]
     Active Substance: SPIRONOLACTONE
     Indication: HYPERTENSION
     Dosage: 25 MILLIGRAM
     Route: 048
     Dates: end: 20191214
  7. LESTAVOR [Suspect]
     Active Substance: ATORVASTATIN CALCIUM
     Indication: BLOOD CHOLESTEROL ABNORMAL
     Dosage: 80 MILLIGRAM
     Route: 048
     Dates: end: 20191214
  8. EPILIZINE [Suspect]
     Active Substance: VALPROATE SODIUM
     Dosage: 300 MILLIGRAM
     Route: 048
     Dates: end: 20191214
  9. TREPILINE [AMITRIPTYLINE HYDROCHLORIDE] [Suspect]
     Active Substance: AMITRIPTYLINE HYDROCHLORIDE
     Indication: STRESS
     Dosage: 25 MILLIGRAM
     Route: 048
     Dates: end: 20191214

REACTIONS (1)
  - Brain neoplasm malignant [Fatal]
